FAERS Safety Report 7532826-X (Version None)
Quarter: 2011Q2

REPORT INFORMATION
  Report Type: 
  Country: None (occurrence: None)
  Receive Date: 20110608
  Receipt Date: 20110607
  Transmission Date: 20111010
  Serious: Yes (Other)
  Sender: FDA-Public Use
  Company Number: CA-PFIZER INC-2011092751

PATIENT
  Age: 73 Year
  Sex: Female
  Weight: 59 kg

DRUGS (12)
  1. RABEPRAZOLE SODIUM [Concomitant]
  2. PLAQUENIL [Concomitant]
     Dosage: UNK
     Dates: start: 20030101
  3. CALCIUM [Concomitant]
  4. LYRICA [Suspect]
     Indication: NECK PAIN
     Dosage: 100 MG, UNK
     Dates: start: 20110315
  5. ENBREL [Suspect]
     Indication: POLYARTHRITIS
     Dosage: 25 MG, 2 TIMES/WK
     Route: 058
     Dates: start: 20031222
  6. RHOVANE [Concomitant]
  7. HYDROCYCLIN [Concomitant]
  8. ATIVAN [Concomitant]
     Dosage: 1 MG, UNK
     Dates: start: 20030101
  9. ADALAT [Concomitant]
  10. CELEBREX [Concomitant]
  11. VITAMIN D [Concomitant]
  12. LIPITOR [Concomitant]

REACTIONS (3)
  - NECK PAIN [None]
  - VISUAL IMPAIRMENT [None]
  - VISION BLURRED [None]
